FAERS Safety Report 19081977 (Version 1)
Quarter: 2021Q1

REPORT INFORMATION
  Report Type: Spontaneous
  Country: US (occurrence: US)
  Receive Date: 20210331
  Receipt Date: 20210331
  Transmission Date: 20210420
  Serious: Yes (Life-Threatening)
  Sender: FDA-Public Use
  Company Number: None

PATIENT
  Age: 69 Year
  Sex: Female
  Weight: 75 kg

DRUGS (1)
  1. PROTAMINE [Suspect]
     Active Substance: PROTAMINE

REACTIONS (1)
  - Hypotension [None]

NARRATIVE: CASE EVENT DATE: 20210330
